FAERS Safety Report 5135648-2 (Version None)
Quarter: 2006Q4

REPORT INFORMATION
  Report Type: 
  Country: None (occurrence: None)
  Receive Date: 20061020
  Receipt Date: 20061006
  Transmission Date: 20070319
  Serious: Yes (Other)
  Sender: FDA-Public Use
  Company Number: 2006S1000217

PATIENT
  Age: 61 Year
  Sex: Male

DRUGS (4)
  1. CUBICIN [Suspect]
     Indication: WOUND INFECTION STAPHYLOCOCCAL
     Dosage: 300 MGP Q48H
     Dates: start: 20050623, end: 20050923
  2. VANCOMYCIN [Concomitant]
  3. GENTAMICIN [Concomitant]
  4. DOXYCYCLINE [Concomitant]

REACTIONS (10)
  - ARTHRITIS BACTERIAL [None]
  - BONE GRAFT [None]
  - DISEASE RECURRENCE [None]
  - INTERVERTEBRAL DISCITIS [None]
  - MENTAL STATUS CHANGES [None]
  - MUSCULOSKELETAL DISORDER [None]
  - OSTEOMYELITIS [None]
  - SPEECH DISORDER [None]
  - STAPHYLOCOCCAL INFECTION [None]
  - STAPHYLOCOCCAL SEPSIS [None]
